FAERS Safety Report 5119977-4 (Version None)
Quarter: 2006Q3

REPORT INFORMATION
  Report Type: 
  Country: None (occurrence: None)
  Receive Date: 20060929
  Receipt Date: 20060918
  Transmission Date: 20061208
  Serious: Yes (Death)
  Sender: FDA-Public Use
  Company Number: 230010

PATIENT
  Age: 76 Year
  Sex: Female

DRUGS (1)
  1. TENECTEPLASE OR PLACEBO(TENECTEPLASE) PWDR + SOLVENT, INJECTION SOLN, [Suspect]
     Indication: CARDIAC ARREST
     Dates: start: 20040913, end: 20040913

REACTIONS (1)
  - PNEUMONIA ASPIRATION [None]
